FAERS Safety Report 9931262 (Version 2)
Quarter: 2014Q1

REPORT INFORMATION
  Report Type: Spontaneous
  Country: US (occurrence: US)
  Receive Date: 20140228
  Receipt Date: 20140312
  Transmission Date: 20141002
  Serious: Yes (Death)
  Sender: FDA-Public Use
  Company Number: US-AMGEN-USASP2014013379

PATIENT
  Age: 74 Year
  Sex: Female
  Weight: 43.08 kg

DRUGS (6)
  1. PROLIA [Suspect]
     Indication: SENILE OSTEOPOROSIS
     Dosage: 60 MG, Q6MO
     Route: 058
     Dates: start: 2012
  2. HYDROXYCHLOROQUINE [Concomitant]
     Indication: RHEUMATOID ARTHRITIS
     Dosage: 300 MG, UNK
     Route: 048
  3. COMBIVENT [Concomitant]
     Indication: CHRONIC OBSTRUCTIVE PULMONARY DISEASE
     Dosage: 20/100 MCG
  4. ADVAIR [Concomitant]
     Indication: CHRONIC OBSTRUCTIVE PULMONARY DISEASE
     Dosage: 100/50MCG
  5. LEVOTHYROXINE [Concomitant]
     Dosage: 100 MG, UNK
     Route: 048
  6. SPIRIVA [Concomitant]
     Indication: CHRONIC OBSTRUCTIVE PULMONARY DISEASE
     Dosage: 18 MUG, UNK

REACTIONS (2)
  - Death [Fatal]
  - Lung disorder [Unknown]
